APPROVED DRUG PRODUCT: EMEND
Active Ingredient: APREPITANT
Strength: 40MG **Federal Register determination that product was not discontinued or withdrawn for safety or effectiveness reasons**
Dosage Form/Route: CAPSULE;ORAL
Application: N021549 | Product #003
Applicant: MERCK SHARP AND DOHME LLC
Approved: Jun 30, 2006 | RLD: Yes | RS: No | Type: DISCN

PATENTS:
Patent 8258132 | Expires: Sep 26, 2027
Patent 8258132 | Expires: Sep 26, 2027